FAERS Safety Report 8687006 (Version 2)
Quarter: 2013Q1

REPORT INFORMATION
  Report Type: Spontaneous
  Country: US (occurrence: US)
  Receive Date: 20120727
  Receipt Date: 20130111
  Transmission Date: 20140127
  Serious: Yes (Hospitalization, Other)
  Sender: FDA-Public Use
  Company Number: US-MSD-1207USA007748

PATIENT
  Sex: Male

DRUGS (3)
  1. PEG-INTRON [Suspect]
     Indication: HEPATITIS C
     Dosage: REDIPEN
     Dates: start: 20120131, end: 20121228
  2. RIBAVIRIN [Suspect]
     Indication: HEPATITIS C
     Dosage: UNK
     Dates: start: 20120131, end: 20121228
  3. VICTRELIS [Suspect]
     Indication: HEPATITIS C
     Dosage: UNK
     Dates: start: 20120228, end: 20121228

REACTIONS (21)
  - Dehydration [Unknown]
  - Premature ageing [Unknown]
  - Bedridden [Unknown]
  - Thinking abnormal [Unknown]
  - Weight increased [Unknown]
  - Blood disorder [Unknown]
  - Anaemia [Unknown]
  - Retching [Unknown]
  - Oropharyngeal pain [Unknown]
  - Vomiting [Unknown]
  - Thirst [Unknown]
  - Alopecia [Unknown]
  - Nasopharyngitis [Unknown]
  - Chest discomfort [Unknown]
  - Fatigue [Unknown]
  - Depression [Unknown]
  - Nausea [Unknown]
  - Pyrexia [Unknown]
  - Anxiety [Unknown]
  - Dry skin [Unknown]
  - Dry skin [Unknown]
